FAERS Safety Report 6525925-2 (Version None)
Quarter: 2010Q1

REPORT INFORMATION
  Report Type: 
  Country: None (occurrence: None)
  Receive Date: 20100104
  Receipt Date: 20091221
  Transmission Date: 20100710
  Serious: Yes (Other)
  Sender: FDA-Public Use
  Company Number: US-PFIZER INC-2009293698

PATIENT
  Sex: Female
  Weight: 78.5 kg

DRUGS (12)
  1. XALATAN [Suspect]
     Indication: GLAUCOMA
     Dosage: 1 GTT, UNK
     Route: 047
  2. AZOPT [Suspect]
     Indication: GLAUCOMA
  3. VISINE EYE DROPS [Concomitant]
     Dosage: FREQUENCY: AS NEEDED,
  4. CRESTOR [Concomitant]
  5. TOPROL-XL [Concomitant]
  6. VALSARTAN [Concomitant]
  7. VITAMIN E [Concomitant]
  8. SYNTHROID [Concomitant]
  9. ACETYLSALICYLIC ACID [Concomitant]
  10. IMDUR [Concomitant]
  11. EFFEXOR [Concomitant]
  12. FISH OIL [Concomitant]

REACTIONS (4)
  - FATIGUE [None]
  - FEAR [None]
  - PRODUCT QUALITY ISSUE [None]
  - STENT PLACEMENT [None]
